FAERS Safety Report 4575642-3 (Version None)
Quarter: 2005Q1

REPORT INFORMATION
  Report Type: 
  Country: None (occurrence: None)
  Receive Date: 20050209
  Receipt Date: 20050128
  Transmission Date: 20050727
  Serious: Yes (Other)
  Sender: FDA-Public Use
  Company Number: AU-GLAXOSMITHKLINE-B0370143A

PATIENT
  Age: 47 Year
  Sex: Female

DRUGS (1)
  1. IMIGRAN [Suspect]
     Indication: MIGRAINE
     Dosage: 100MG SINGLE DOSE
     Route: 065
     Dates: start: 19930319, end: 19930519

REACTIONS (9)
  - AGITATION [None]
  - CONFUSIONAL STATE [None]
  - CYANOSIS [None]
  - DYSPNOEA [None]
  - FEELING COLD [None]
  - HYPERKINESIA [None]
  - PARAESTHESIA [None]
  - RASH [None]
  - VOMITING [None]
